FAERS Safety Report 20050918 (Version 1)
Quarter: 2021Q4

REPORT INFORMATION
  Report Type: Report from Study
  Country: RO (occurrence: RO)
  Receive Date: 20211110
  Receipt Date: 20211110
  Transmission Date: 20220303
  Serious: Yes (Death, Hospitalization)
  Sender: FDA-Public Use
  Company Number: RO-ABBVIE-21K-135-4155265-00

PATIENT
  Age: 66 Year
  Sex: Female

DRUGS (4)
  1. DASABUVIR [Suspect]
     Active Substance: DASABUVIR
     Indication: Hepatitis C
     Route: 048
     Dates: start: 20210526, end: 20210720
  2. DASABUVIR [Suspect]
     Active Substance: DASABUVIR
     Indication: Chronic hepatitis
  3. OMBITASVIR\PARITAPREVIR\RITONAVIR [Suspect]
     Active Substance: OMBITASVIR\PARITAPREVIR\RITONAVIR
     Indication: Hepatitis C
     Route: 048
     Dates: start: 20210526, end: 20210720
  4. OMBITASVIR\PARITAPREVIR\RITONAVIR [Suspect]
     Active Substance: OMBITASVIR\PARITAPREVIR\RITONAVIR
     Indication: Chronic hepatitis

REACTIONS (5)
  - Death [Fatal]
  - Epistaxis [Unknown]
  - Asthenia [Unknown]
  - Decreased appetite [Unknown]
  - Bone pain [Unknown]

NARRATIVE: CASE EVENT DATE: 20210701
